FAERS Safety Report 4750352-8 (Version None)
Quarter: 2005Q3

REPORT INFORMATION
  Report Type: 
  Country: None (occurrence: None)
  Receive Date: 20050818
  Receipt Date: 20050815
  Transmission Date: 20060218
  Serious: Yes (Death)
  Sender: FDA-Public Use
  Company Number: 200509345

PATIENT
  Age: 52 Year
  Sex: Male

DRUGS (4)
  1. STREPTOKINAE (STREPTOKINASE) (UNKNOWN) [Suspect]
     Indication: MYOCARDIAL INFARCTION
     Dosage: 1.5 MIU DAILY IV
     Route: 042
     Dates: start: 20050328, end: 20050328
  2. ASPIRIN [Suspect]
     Indication: MYOCARDIAL INFARCTION
     Dosage: 300 MG DAILY PO
     Route: 048
     Dates: start: 20050328, end: 20050328
  3. ENOXAPARIN OR PLACEBO VS. HEPARIN OR PLACEBO [Suspect]
     Indication: MYOCARDIAL INFARCTION
     Dosage: INTRAVENOUS
     Route: 042
     Dates: start: 20050328, end: 20050329
  4. MORPHINE [Concomitant]

REACTIONS (1)
  - CARDIAC ARREST [None]
